FAERS Safety Report 5763587-2 (Version None)
Quarter: 2008Q2

REPORT INFORMATION
  Report Type: 
  Country: None (occurrence: None)
  Receive Date: 20080610
  Receipt Date: 20080530
  Transmission Date: 20081010
  Serious: Yes (Hospitalization, Other)
  Sender: FDA-Public Use
  Company Number: PHHY2008JP08616

PATIENT
  Age: 73 Year
  Sex: Female

DRUGS (8)
  1. DIOVAN [Suspect]
     Indication: HYPERTENSION
     Dosage: UNK
     Route: 048
     Dates: start: 20080425, end: 20080501
  2. SEIBULE [Suspect]
     Indication: DRUG HYPERSENSITIVITY
     Dosage: UNK
     Dates: start: 20080425, end: 20080501
  3. SEIBULE [Suspect]
     Indication: DIABETES MELLITUS
  4. LOXONIN [Concomitant]
     Indication: PHARYNGITIS
     Dosage: UNK
     Route: 048
     Dates: start: 20080408, end: 20080425
  5. APLACE [Concomitant]
     Indication: GASTRITIS
     Dosage: UNK
     Route: 048
     Dates: start: 20080408, end: 20080425
  6. GENINAX [Concomitant]
     Indication: PHARYNGITIS
     Dosage: UNK
     Route: 048
     Dates: start: 20080408, end: 20080425
  7. CONIEL [Suspect]
     Indication: HYPERTENSION
     Dosage: UNK
     Route: 048
     Dates: start: 20080408, end: 20080410
  8. CALBLOCK [Concomitant]
     Indication: HYPERTENSION
     Dosage: UNK
     Route: 048
     Dates: start: 20080410, end: 20080425

REACTIONS (7)
  - FLUSHING [None]
  - MONOCYTE PERCENTAGE INCREASED [None]
  - PURPURA [None]
  - RASH [None]
  - RASH GENERALISED [None]
  - SKIN EXFOLIATION [None]
  - THIRST [None]
